FAERS Safety Report 21553109 (Version 2)
Quarter: 2022Q4

REPORT INFORMATION
  Report Type: Spontaneous
  Country: KR (occurrence: KR)
  Receive Date: 20221104
  Receipt Date: 20221128
  Transmission Date: 20230112
  Serious: Yes (Other)
  Sender: FDA-Public Use
  Company Number: KR-MYLANLABS-2022M1120006

PATIENT
  Age: 49 Year
  Sex: Male
  Weight: 87.5 kg

DRUGS (2)
  1. CEFTRIAXONE SODIUM [Suspect]
     Active Substance: CEFTRIAXONE SODIUM
     Indication: Brain neoplasm
     Dosage: 2 GRAM, QD
     Route: 065
     Dates: start: 20200615, end: 20200621
  2. LYRICA [Concomitant]
     Active Substance: PREGABALIN
     Indication: Brain neoplasm
     Dosage: 1 DOSAGE FORM, QD
     Route: 065
     Dates: start: 20181130

REACTIONS (2)
  - Neuropathy peripheral [Recovered/Resolved]
  - Off label use [Unknown]

NARRATIVE: CASE EVENT DATE: 20181130
